FAERS Safety Report 10903175 (Version 8)
Quarter: 2016Q1

REPORT INFORMATION
  Report Type: Report from Study
  Country: GR (occurrence: GR)
  Receive Date: 20150311
  Receipt Date: 20160101
  Transmission Date: 20160525
  Serious: Yes (Life-Threatening, Hospitalization)
  Sender: FDA-Public Use
  Company Number: GR-ROCHE-1524723

PATIENT
  Age: 59 Year
  Sex: Female
  Weight: 56 kg

DRUGS (2)
  1. THYROHORMONE [Concomitant]
     Route: 065
     Dates: start: 2002
  2. TRASTUZUMAB EMTANSINE [Suspect]
     Active Substance: ADO-TRASTUZUMAB EMTANSINE
     Indication: HER-2 POSITIVE BREAST CANCER
     Dosage: LAST DOSE PRIOR TO THE SAE WAS GIVEN ON 02/MAR/2015.?LAST DOSE PRIOR TO THE SAE WAS GIVEN ON 19/JAN/
     Route: 042
     Dates: start: 20130628, end: 20150302

REACTIONS (2)
  - Disseminated intravascular coagulation [Recovered/Resolved]
  - Multiple organ dysfunction syndrome [Recovered/Resolved]

NARRATIVE: CASE EVENT DATE: 20150120
